FAERS Safety Report 4495983-8 (Version None)
Quarter: 2004Q4

REPORT INFORMATION
  Report Type: 
  Country: None (occurrence: None)
  Receive Date: 20041108
  Receipt Date: 20041011
  Transmission Date: 20050328
  Serious: Yes (Other)
  Sender: FDA-Public Use
  Company Number: PHRM2004FR03098

PATIENT
  Age: 72 Year
  Sex: Male
  Weight: 92 kg

DRUGS (3)
  1. TAREG [Suspect]
     Indication: HYPERTENSION
     Route: 048
     Dates: start: 20000101, end: 20040901
  2. GLUCOPHAGE [Concomitant]
     Route: 048
  3. VOLTARENE EMULGEL [Suspect]
     Indication: MUSCULOSKELETAL PAIN
     Route: 003
     Dates: start: 20040801, end: 20040815

REACTIONS (3)
  - DRY SKIN [None]
  - PURPURA [None]
  - VASCULITIS [None]
